FAERS Safety Report 14139610 (Version 5)
Quarter: 2017Q4

REPORT INFORMATION
  Report Type: Report from Study
  Country: BR (occurrence: BR)
  Receive Date: 20171029
  Receipt Date: 20171228
  Transmission Date: 20180321
  Serious: Yes (Life-Threatening, Other)
  Sender: FDA-Public Use
  Company Number: PHHY2017BR075469

PATIENT
  Sex: Female
  Weight: 62 kg

DRUGS (19)
  1. PREDNISONE. [Concomitant]
     Active Substance: PREDNISONE
     Indication: PSORIATIC ARTHROPATHY
     Dosage: 1 DF, QD
     Route: 048
  2. VENLAFAXINE [Concomitant]
     Active Substance: VENLAFAXINE HYDROCHLORIDE
     Indication: DEPRESSION
     Dosage: 1 DF, QD (FOR 6 YEARS)
     Route: 048
  3. XELJANZ [Concomitant]
     Active Substance: TOFACITINIB CITRATE
     Indication: PRODUCT USED FOR UNKNOWN INDICATION
     Dosage: 1 DF, QD
     Route: 048
     Dates: start: 20171113
  4. COSENTYX [Suspect]
     Active Substance: SECUKINUMAB
     Dosage: 300 MG, QMO (2 AMPOULES)
     Route: 058
  5. PREDNISONE. [Concomitant]
     Active Substance: PREDNISONE
     Indication: ARTHRITIS
  6. DONAREN [Concomitant]
     Active Substance: TRAZODONE HYDROCHLORIDE
     Indication: PSORIATIC ARTHROPATHY
     Dosage: 2 DF, QD
     Route: 048
  7. DEPURA [Concomitant]
     Active Substance: CHOLECALCIFEROL
     Indication: VITAMIN B COMPLEX DEFICIENCY
     Dosage: 10 DRP, QD (13 YEARS AGO)
     Route: 048
  8. CONCARDIO [Concomitant]
     Active Substance: BISOPROLOL FUMARATE
     Indication: ARRHYTHMIA
     Dosage: 0.5 DF, QD (FROM 10 YEARS AGO)
     Route: 048
  9. PREDNISONE. [Concomitant]
     Active Substance: PREDNISONE
     Indication: FIBROMYALGIA
  10. COSENTYX [Suspect]
     Active Substance: SECUKINUMAB
     Indication: PSORIATIC ARTHROPATHY
     Dosage: 300 MG, UNK
     Route: 058
     Dates: start: 201702
  11. COSENTYX [Suspect]
     Active Substance: SECUKINUMAB
     Indication: RHEUMATOID ARTHRITIS
     Dosage: 300 MG, QMO
     Route: 058
     Dates: start: 201708
  12. VITAMIN B COMPLEX [Concomitant]
     Active Substance: CYANOCOBALAMIN\DEXPANTHENOL\NIACINAMIDE\PYRIDOXINE HYDROCHLORIDE\RIBOFLAVIN 5^-PHOSPHATE SODIUM\THIAMINE HYDROCHLORIDE\VITAMIN B COMPLEX
     Indication: VITAMIN B COMPLEX DEFICIENCY
     Dosage: 1 DF, QD (FOR 1 MONTH)
     Route: 048
  13. PREDNISONE. [Concomitant]
     Active Substance: PREDNISONE
     Indication: RHEUMATOID ARTHRITIS
     Dosage: 2 DF, QD (12 YEARS AGO)
     Route: 048
  14. DONAREN [Concomitant]
     Active Substance: TRAZODONE HYDROCHLORIDE
     Indication: RHEUMATOID ARTHRITIS
  15. PANTOPRAZOLE [Concomitant]
     Active Substance: PANTOPRAZOLE
     Indication: DYSPEPSIA
     Dosage: 40 MG, QD
     Route: 048
  16. COSENTYX [Suspect]
     Active Substance: SECUKINUMAB
     Dosage: UNK
     Route: 058
  17. COSENTYX [Suspect]
     Active Substance: SECUKINUMAB
     Indication: FIBROMYALGIA
     Dosage: 300 MG, QMO
     Route: 058
  18. PARACETAMOL [Concomitant]
     Active Substance: ACETAMINOPHEN
     Indication: PAIN
     Dosage: UNK UNK, Q8H (FOR 14 YEARS)
     Route: 048
  19. RIVOTRIL [Concomitant]
     Active Substance: CLONAZEPAM
     Indication: DEPRESSION
     Dosage: 2 MG, QD (FOR 14 YEARS)
     Route: 048

REACTIONS (20)
  - Gait inability [Recovering/Resolving]
  - Psoriasis [Recovering/Resolving]
  - Pain [Unknown]
  - Swelling face [Unknown]
  - Onychomadesis [Unknown]
  - Hypokinesia [Unknown]
  - Pain in extremity [Recovering/Resolving]
  - Contusion [Recovering/Resolving]
  - Screaming [Unknown]
  - Weight decreased [Recovering/Resolving]
  - Neck pain [Recovering/Resolving]
  - Onychoclasis [Unknown]
  - Rheumatoid arthritis [Unknown]
  - Oedema [Recovering/Resolving]
  - Psoriatic arthropathy [Unknown]
  - Product use in unapproved indication [Unknown]
  - Movement disorder [Recovering/Resolving]
  - Insomnia [Unknown]
  - Peripheral swelling [Recovering/Resolving]
  - Arthralgia [Recovering/Resolving]
